FAERS Safety Report 7042380-7 (Version None)
Quarter: 2010Q4

REPORT INFORMATION
  Report Type: 
  Country: None (occurrence: None)
  Receive Date: 20101013
  Receipt Date: 20100503
  Transmission Date: 20110411
  Serious: No
  Sender: FDA-Public Use
  Company Number: US-ASTRAZENECA-2010SE20050

PATIENT
  Age: 26922 Day
  Sex: Male

DRUGS (1)
  1. SYMBICORT [Suspect]
     Indication: CHRONIC OBSTRUCTIVE PULMONARY DISEASE
     Dosage: 160 MCG, 1 PUFF AROUND 12:00 PM DAILY
     Route: 055
     Dates: start: 20100407

REACTIONS (2)
  - INCORRECT DOSE ADMINISTERED [None]
  - TINEA INFECTION [None]
